FAERS Safety Report 16276479 (Version 2)
Quarter: 2019Q3

REPORT INFORMATION
  Report Type: Report from Study
  Country: US (occurrence: US)
  Receive Date: 20190505
  Receipt Date: 20190718
  Transmission Date: 20191004
  Serious: No
  Sender: FDA-Public Use
  Company Number: US-009507513-1905USA000490

PATIENT
  Age: 16 Year
  Sex: Female
  Weight: 50.34 kg

DRUGS (1)
  1. IMPLANON [Suspect]
     Active Substance: ETONOGESTREL
     Dosage: 1 IMPLANT EVERY 3 YEARS
     Route: 059
     Dates: start: 20190424

REACTIONS (2)
  - Complication of device insertion [Unknown]
  - Product quality issue [Unknown]

NARRATIVE: CASE EVENT DATE: 20190424
